FAERS Safety Report 25851484 (Version 2)
Quarter: 2025Q4

REPORT INFORMATION
  Report Type: Spontaneous
  Country: US (occurrence: US)
  Receive Date: 20250926
  Receipt Date: 20251008
  Transmission Date: 20260118
  Serious: No
  Sender: BRISTOL-MYERS SQUIBB COMPANY
  Company Number: US-BRISTOL-MYERS SQUIBB COMPANY-2025-132335

PATIENT
  Age: 78 Year
  Sex: Female
  Weight: 62.6 kg

DRUGS (1)
  1. REVLIMID [Suspect]
     Active Substance: LENALIDOMIDE
     Indication: Myelodysplastic syndrome
     Dosage: ONCE DAILY FOR 21 DAYS ON THEN 7 DAYS OFF
     Dates: start: 202411

REACTIONS (2)
  - Vomiting [Unknown]
  - Product dose omission issue [Unknown]
